FAERS Safety Report 7298736-0 (Version None)
Quarter: 2011Q1

REPORT INFORMATION
  Report Type: 
  Country: None (occurrence: None)
  Receive Date: 20110209
  Receipt Date: 20110124
  Transmission Date: 20110831
  Serious: Yes (Hospitalization, Other)
  Sender: FDA-Public Use
  Company Number: 2011MA000629

PATIENT
  Age: 54 Year
  Sex: Male

DRUGS (1)
  1. CARBAMAZEPINE [Suspect]
     Dosage: PO
     Route: 048
     Dates: start: 20070201

REACTIONS (11)
  - HAEMATOCRIT DECREASED [None]
  - NEUTROPHIL PERCENTAGE INCREASED [None]
  - HAEMOGLOBIN DECREASED [None]
  - RED BLOOD CELL COUNT DECREASED [None]
  - BLOOD LACTATE DEHYDROGENASE INCREASED [None]
  - GAMMA-GLUTAMYLTRANSFERASE INCREASED [None]
  - MONOCYTE PERCENTAGE DECREASED [None]
  - BLOOD SODIUM DECREASED [None]
  - LYMPHOCYTE PERCENTAGE DECREASED [None]
  - BLOOD ALBUMIN DECREASED [None]
  - STEVENS-JOHNSON SYNDROME [None]
